FAERS Safety Report 16858835 (Version 4)
Quarter: 2019Q4

REPORT INFORMATION
  Report Type: Report from Study
  Country: US (occurrence: US)
  Receive Date: 20190926
  Receipt Date: 20191031
  Transmission Date: 20200122
  Serious: Yes (Hospitalization, Other)
  Sender: FDA-Public Use
  Company Number: US-ACTELION-A-NJ2019-196026

PATIENT
  Age: 84 Year
  Sex: Female
  Weight: 64.85 kg

DRUGS (25)
  1. ARMOUR THYROID [Concomitant]
     Active Substance: THYROID, PORCINE
  2. LORATADINE. [Concomitant]
     Active Substance: LORATADINE
  3. PANTOPRAZOLE [Concomitant]
     Active Substance: PANTOPRAZOLE
  4. FUROSEMIDE. [Concomitant]
     Active Substance: FUROSEMIDE
  5. CLOTRIMAZOLE. [Concomitant]
     Active Substance: CLOTRIMAZOLE
  6. MIRTAZAPINE. [Concomitant]
     Active Substance: MIRTAZAPINE
  7. DOCUSATE [Concomitant]
     Active Substance: DOCUSATE
  8. NOVOLOG [Concomitant]
     Active Substance: INSULIN ASPART
  9. LANTUS [Concomitant]
     Active Substance: INSULIN GLARGINE
  10. VITAMIN D [Concomitant]
     Active Substance: VITAMIN D NOS
  11. METAMUCIL [Concomitant]
     Active Substance: PLANTAGO SEED
  12. URSODIOL. [Concomitant]
     Active Substance: URSODIOL
  13. OPSUMIT [Suspect]
     Active Substance: MACITENTAN
     Indication: PULMONARY ARTERIAL HYPERTENSION
     Dosage: 10 MG, QD
     Route: 048
     Dates: start: 20180622
  14. OLMESARTAN [Concomitant]
     Active Substance: OLMESARTAN
  15. ALPRAZOLAM. [Concomitant]
     Active Substance: ALPRAZOLAM
  16. MULTIVITAMIN [Concomitant]
     Active Substance: VITAMINS
  17. SYSTANE (HYPROMELLOSE 2910 (4000 MPA.S)) [Concomitant]
     Active Substance: HYPROMELLOSE 2910 (4000 MPA.S)
  18. ADCIRCA [Concomitant]
     Active Substance: TADALAFIL
     Dosage: 20 MG
  19. CLOPIDOGREL [Concomitant]
     Active Substance: CLOPIDOGREL BISULFATE
  20. ATORVASTATIN [Concomitant]
     Active Substance: ATORVASTATIN
  21. CEREFOLIN NAC [Concomitant]
  22. METOPROLOL. [Concomitant]
     Active Substance: METOPROLOL
  23. CITALOPRAM [Concomitant]
     Active Substance: CITALOPRAM HYDROBROMIDE
  24. INCRUSE ELLIPTA [Concomitant]
     Active Substance: UMECLIDINIUM BROMIDE
  25. PROBIOTIC [Concomitant]
     Active Substance: PROBIOTICS NOS

REACTIONS (25)
  - Body temperature increased [Recovering/Resolving]
  - Carotid bruit [Unknown]
  - Electrocardiogram abnormal [Unknown]
  - Pulmonary arterial pressure increased [Recovering/Resolving]
  - Decreased appetite [Unknown]
  - Oedema peripheral [Recovering/Resolving]
  - Atrioventricular block first degree [Unknown]
  - Diastolic dysfunction [Unknown]
  - Dyspnoea exertional [Recovering/Resolving]
  - Arrhythmia supraventricular [Unknown]
  - Fall [Unknown]
  - Weight increased [Unknown]
  - Jugular vein distension [Unknown]
  - Atrial enlargement [Unknown]
  - Tricuspid valve incompetence [Unknown]
  - Pneumonia [Recovering/Resolving]
  - Fatigue [Recovering/Resolving]
  - Vitrectomy [Unknown]
  - Ascites [Unknown]
  - Cardiac failure congestive [Recovering/Resolving]
  - Cardiac murmur [Unknown]
  - Left ventricular hypertrophy [Unknown]
  - Right ventricular dilatation [Unknown]
  - Pulmonary valve incompetence [Unknown]
  - Cough [Recovering/Resolving]

NARRATIVE: CASE EVENT DATE: 20190129
